FAERS Safety Report 7209706-2 (Version None)
Quarter: 2011Q1

REPORT INFORMATION
  Report Type: 
  Country: None (occurrence: None)
  Receive Date: 20110104
  Receipt Date: 20101229
  Transmission Date: 20110831
  Serious: Yes (Hospitalization, Other)
  Sender: FDA-Public Use
  Company Number: BR-ABBOTT-10P-020-0688261-00

PATIENT
  Sex: Female
  Weight: 57 kg

DRUGS (2)
  1. ENALAPRIL [Concomitant]
     Indication: HYPERTENSION
     Route: 048
  2. HUMIRA [Suspect]
     Indication: RHEUMATOID ARTHRITIS
     Route: 058
     Dates: start: 20080601

REACTIONS (8)
  - FEELING ABNORMAL [None]
  - VENOUS OCCLUSION [None]
  - PERIPHERAL EMBOLISM [None]
  - RHEUMATOID ARTHRITIS [None]
  - WEIGHT DECREASED [None]
  - HYPOTENSION [None]
  - FALL [None]
  - MITRAL VALVE DISEASE [None]
